FAERS Safety Report 10985695 (Version 1)
Quarter: 2015Q2

REPORT INFORMATION
  Report Type: Spontaneous
  Country: US (occurrence: US)
  Receive Date: 20150404
  Receipt Date: 20150404
  Transmission Date: 20150821
  Serious: No
  Sender: FDA-Public Use
  Company Number: US-SA-2014SA040812

PATIENT
  Age: 58 Year
  Sex: Female

DRUGS (1)
  1. ALLEGRA-D [Suspect]
     Active Substance: FEXOFENADINE\PSEUDOEPHEDRINE
     Indication: ALLERGIC SINUSITIS
     Dosage: DOSE 1-2 TABLETS PER DAY
     Route: 048

REACTIONS (3)
  - Malaise [Unknown]
  - Hypersensitivity [Unknown]
  - Product taste abnormal [Unknown]
